FAERS Safety Report 26067445 (Version 1)
Quarter: 2025Q4

REPORT INFORMATION
  Report Type: Spontaneous
  Country: JP (occurrence: JP)
  Receive Date: 20251120
  Receipt Date: 20251120
  Transmission Date: 20260117
  Serious: Yes (Other)
  Sender: AMGEN
  Company Number: JP-AMGEN-JPNSP2025225891

PATIENT

DRUGS (2)
  1. EVENITY [Suspect]
     Active Substance: ROMOSOZUMAB-AQQG
     Indication: Product used for unknown indication
     Dosage: 210 MILLIGRAM
     Route: 058
     Dates: end: 20250820
  2. VITAMIN D [Concomitant]
     Active Substance: VITAMIN D NOS
     Indication: Osteoporosis
     Dosage: UNK

REACTIONS (10)
  - Loss of consciousness [Unknown]
  - Tooth extraction [Unknown]
  - Tooth fracture [Unknown]
  - Dental caries [Unknown]
  - Arthralgia [Recovering/Resolving]
  - Gingival abscess [Recovering/Resolving]
  - Tooth abscess [Unknown]
  - Mobility decreased [Recovering/Resolving]
  - Hypersensitivity [Unknown]
  - Drug effect less than expected [Unknown]

NARRATIVE: CASE EVENT DATE: 20250101
